FAERS Safety Report 18281407 (Version 2)
Quarter: 2025Q3

REPORT INFORMATION
  Report Type: Spontaneous
  Country: EU (occurrence: EU)
  Receive Date: 20200918
  Receipt Date: 20250901
  Transmission Date: 20251020
  Serious: Yes (Other)
  Sender: AUROBINDO
  Company Number: EU-PFM-2020-17956

PATIENT
  Age: 49 Year
  Sex: Female

DRUGS (3)
  1. TRANEXAMIC ACID [Suspect]
     Active Substance: TRANEXAMIC ACID
     Indication: Heavy menstrual bleeding
     Route: 065
  2. METRONIDAZOLE\SPIRAMYCIN [Suspect]
     Active Substance: METRONIDAZOLE\SPIRAMYCIN
     Indication: Tooth disorder
     Route: 065
  3. DESMOPRESSIN [Concomitant]
     Active Substance: DESMOPRESSIN
     Indication: Tooth extraction
     Route: 065

REACTIONS (6)
  - Carotidynia [Unknown]
  - Headache [Unknown]
  - Tenderness [Unknown]
  - Arterial intramural haematoma [Unknown]
  - Iron deficiency anaemia [Unknown]
  - Neck pain [Unknown]
